FAERS Safety Report 9604182 (Version 1)
Quarter: 2013Q4

REPORT INFORMATION
  Report Type: Other
  Country: IL (occurrence: IL)
  Receive Date: 20131008
  Receipt Date: 20131008
  Transmission Date: 20140711
  Serious: Yes (Hospitalization)
  Sender: FDA-Public Use
  Company Number: IL-BRISTOL-MYERS SQUIBB COMPANY-19489640

PATIENT
  Age: 78 Year
  Sex: Male
  Weight: 82 kg

DRUGS (8)
  1. METFORMIN HCL [Suspect]
     Indication: TYPE 2 DIABETES MELLITUS
  2. AMOXICILLIN + CLAVULANIC ACID [Suspect]
     Indication: PAROTITIS
  3. PRAVASTATINE [Suspect]
  4. ASPIRIN [Concomitant]
  5. AMLODIPINE [Concomitant]
  6. ATENOLOL [Concomitant]
  7. CANDESARTAN [Concomitant]
  8. HYDROCHLOROTHIAZIDE [Concomitant]

REACTIONS (1)
  - Mixed liver injury [Recovered/Resolved]
